FAERS Safety Report 15895475 (Version 1)
Quarter: 2019Q1

REPORT INFORMATION
  Report Type: Spontaneous
  Country: RO (occurrence: RO)
  Receive Date: 20190131
  Receipt Date: 20190131
  Transmission Date: 20190417
  Serious: Yes (Other)
  Sender: FDA-Public Use
  Company Number: RO-DRREDDYS-GER/ROM/18/0105866

PATIENT
  Age: 45 Year
  Sex: Female

DRUGS (2)
  1. IMATINIB. [Suspect]
     Active Substance: IMATINIB MESYLATE
     Indication: GASTROINTESTINAL STROMAL TUMOUR
     Dosage: 800 MG, QD
     Dates: start: 201406
  2. IMATINIB. [Suspect]
     Active Substance: IMATINIB MESYLATE
     Indication: METASTASES TO LIVER
     Dosage: 800 MG, DAILY

REACTIONS (10)
  - Skin necrosis [Unknown]
  - Decreased appetite [Recovered/Resolved]
  - Drug resistance [Unknown]
  - Anxiety [Recovered/Resolved]
  - Generalised oedema [Recovered/Resolved]
  - Dermatitis bullous [Unknown]
  - Drug effect incomplete [Unknown]
  - Ecchymosis [Recovered/Resolved]
  - Dermatitis [Recovered/Resolved]
  - Necrotising fasciitis [Unknown]
